FAERS Safety Report 9006227 (Version 2)
Quarter: 2013Q1

REPORT INFORMATION
  Report Type: Spontaneous
  Country: US (occurrence: US)
  Receive Date: 20130110
  Receipt Date: 20130329
  Transmission Date: 20140127
  Serious: No
  Sender: FDA-Public Use
  Company Number: US-009507513-1301USA002588

PATIENT
  Sex: Male

DRUGS (4)
  1. PEGINTRON [Suspect]
     Indication: HEPATITIS C
     Dosage: 120 MICROGRAM INJECTED ONCE WEEKLY
     Route: 058
     Dates: start: 20120702
  2. PEGINTRON [Suspect]
     Dosage: 120 MICROGRAM INJECTED ONCE WEEKLY
     Route: 058
     Dates: start: 20120702
  3. RIBAPAK [Suspect]
  4. INCIVEK [Suspect]

REACTIONS (3)
  - Feeling abnormal [Not Recovered/Not Resolved]
  - White blood cell count decreased [Not Recovered/Not Resolved]
  - Fatigue [Not Recovered/Not Resolved]
